FAERS Safety Report 6219237-4 (Version None)
Quarter: 2009Q2

REPORT INFORMATION
  Report Type: 
  Country: None (occurrence: None)
  Receive Date: 20090605
  Receipt Date: 20090605
  Transmission Date: 20091009
  Serious: Yes (Hospitalization)
  Sender: FDA-Public Use
  Company Number: None

PATIENT
  Age: 33 Year
  Sex: Male
  Weight: 79 kg

DRUGS (6)
  1. BACTRIM [Suspect]
     Dosage: 1 TAB QD PO
     Route: 048
     Dates: start: 20081102, end: 20081107
  2. VERAPAMIL [Concomitant]
  3. SYNTHROID [Concomitant]
  4. BACTRIM [Concomitant]
  5. ALBUTEROL [Concomitant]
  6. ADVAIR HFA [Concomitant]

REACTIONS (1)
  - MENINGITIS ASEPTIC [None]
